FAERS Safety Report 8497722-2 (Version None)
Quarter: 2012Q3

REPORT INFORMATION
  Report Type: 
  Country: None (occurrence: None)
  Receive Date: 20120709
  Receipt Date: 20120604
  Transmission Date: 20120928
  Serious: No
  Sender: FDA-Public Use
  Company Number: US-AMGEN-USASP2012034887

PATIENT
  Age: 52 Year
  Sex: Male

DRUGS (2)
  1. ENBREL [Suspect]
     Indication: PSORIATIC ARTHROPATHY
     Dosage: 50 MG, QWK
     Dates: start: 20120423
  2. TREXALL [Concomitant]
     Dosage: 1 MG, UNK
     Dates: start: 20100101

REACTIONS (3)
  - ABDOMINAL PAIN [None]
  - BACK PAIN [None]
  - ARTHRALGIA [None]
